FAERS Safety Report 8840256 (Version 2)
Quarter: 2012Q4

REPORT INFORMATION
  Report Type: 
  Country: JP (occurrence: JP)
  Receive Date: 20121015
  Receipt Date: 20121121
  Transmission Date: 20130627
  Serious: Yes (Death)
  Sender: FDA-Public Use
  Company Number: JP-GLAXOSMITHKLINE-B0837294A

PATIENT
  Age: 63 Year
  Sex: Male

DRUGS (6)
  1. ZANTAC [Suspect]
     Indication: GASTRIC ULCER
     Dosage: 75MG Twice per day
     Route: 048
     Dates: start: 20111021, end: 20111028
  2. CRAVIT [Suspect]
     Indication: BRONCHITIS
     Dosage: 250MG Twice per day
     Route: 048
     Dates: start: 20110921, end: 20111026
  3. UNASYN-S [Concomitant]
     Indication: BRONCHITIS
     Dosage: 1.5G Four times per day
     Route: 042
     Dates: start: 20111017, end: 20111021
  4. CHINESE MEDICINE [Concomitant]
     Indication: PRODUCTIVE COUGH
     Dosage: 3G Three times per day
     Dates: start: 20111018, end: 20111026
  5. CALONAL [Concomitant]
     Indication: PYREXIA
     Dosage: 200MG Per day
     Route: 048
     Dates: start: 20111019
  6. TAKEPRON [Concomitant]
     Indication: GASTRIC ULCER
     Dosage: 15MG Per day
     Route: 048
     Dates: start: 20110921, end: 20111020

REACTIONS (8)
  - Oculomucocutaneous syndrome [Fatal]
  - Pneumonia [Fatal]
  - Erythema [Unknown]
  - Rash [Unknown]
  - Oral mucosa erosion [Unknown]
  - Conjunctival erosion [Unknown]
  - Abdominal pain [Unknown]
  - Mucous membrane disorder [Unknown]
